FAERS Safety Report 23076849 (Version 1)
Quarter: 2023Q4

REPORT INFORMATION
  Report Type: Spontaneous
  Country: US (occurrence: US)
  Receive Date: 20231018
  Receipt Date: 20231018
  Transmission Date: 20240110
  Serious: No
  Sender: FDA-Public Use
  Company Number: US-JNJFOC-20231017967

PATIENT
  Age: 90 Year
  Sex: Female

DRUGS (2)
  1. XARELTO [Suspect]
     Active Substance: RIVAROXABAN
     Indication: Product used for unknown indication
     Route: 048
  2. BAYER ASPIRIN [Concomitant]
     Active Substance: ASPIRIN

REACTIONS (4)
  - Product dose omission issue [Unknown]
  - Hypertension [Unknown]
  - Heart rate increased [Unknown]
  - Panic disorder [Unknown]

NARRATIVE: CASE EVENT DATE: 20231006
